FAERS Safety Report 13525594 (Version 1)
Quarter: 2017Q2

REPORT INFORMATION
  Report Type: Spontaneous
  Country: GB (occurrence: GB)
  Receive Date: 20170508
  Receipt Date: 20170508
  Transmission Date: 20170830
  Serious: Yes (Other)
  Sender: FDA-Public Use
  Company Number: PHHY2017GB064269

PATIENT
  Age: 69 Year
  Sex: Male

DRUGS (8)
  1. DEXTROSE 5% [Concomitant]
     Active Substance: DEXTROSE
     Dosage: UNK 50 ML 50% DEXTROSE
     Route: 040
  2. COTRIMOXAZOLE [Suspect]
     Active Substance: SULFAMETHOXAZOLE\TRIMETHOPRIM
     Indication: MICROSCOPIC POLYANGIITIS
     Dosage: 2880 MG, BID
     Route: 048
  3. GLUCAGON. [Concomitant]
     Active Substance: GLUCAGON
     Indication: HYPOGLYCAEMIA
     Route: 030
  4. DEXTROSE 5% [Concomitant]
     Active Substance: DEXTROSE
     Indication: HYPOGLYCAEMIA
     Route: 041
  5. DEXTROSE 5% [Concomitant]
     Active Substance: DEXTROSE
     Dosage: UNK 20%
     Route: 041
  6. PIPERACILLIN AND TAZOBACTAM [Suspect]
     Active Substance: PIPERACILLIN SODIUM\TAZOBACTAM SODIUM
     Indication: MICROSCOPIC POLYANGIITIS
     Route: 065
  7. PREDNISOLONE. [Concomitant]
     Active Substance: PREDNISOLONE
     Indication: MICROSCOPIC POLYANGIITIS
     Dosage: INCREASED DOSE
     Route: 065
  8. DIAZEPAM. [Concomitant]
     Active Substance: DIAZEPAM
     Indication: GENERALISED TONIC-CLONIC SEIZURE
     Route: 065

REACTIONS (1)
  - Hyperinsulinaemia [Unknown]
